FAERS Safety Report 8822857 (Version 2)
Quarter: 2015Q3

REPORT INFORMATION
  Report Type: Report from Study
  Country: US (occurrence: US)
  Receive Date: 20121003
  Receipt Date: 20150701
  Transmission Date: 20151125
  Serious: Yes (Death)
  Sender: FDA-Public Use
  Company Number: US-ROCHE-1130916

PATIENT
  Sex: Male
  Weight: 74.46 kg

DRUGS (17)
  1. IFOSFAMIDE. [Concomitant]
     Active Substance: IFOSFAMIDE
  2. WARFARIN [Concomitant]
     Active Substance: WARFARIN
  3. FOLIC ACID. [Concomitant]
     Active Substance: FOLIC ACID
  4. ALBUTEROL. [Concomitant]
     Active Substance: ALBUTEROL
  5. MENSALGIN [Concomitant]
  6. ACETAMINOPHEN. [Concomitant]
     Active Substance: ACETAMINOPHEN
     Route: 048
  7. CYTARABINE. [Concomitant]
     Active Substance: CYTARABINE
  8. DIPHENHYDRAMINE. [Concomitant]
     Active Substance: DIPHENHYDRAMINE
     Route: 048
  9. RITUXAN [Suspect]
     Active Substance: RITUXIMAB
     Indication: HODGKIN^S DISEASE
     Route: 042
     Dates: start: 20050520
  10. FLUTICASONE [Concomitant]
     Active Substance: FLUTICASONE\FLUTICASONE PROPIONATE
  11. SOLU-MEDROL [Concomitant]
     Active Substance: METHYLPREDNISOLONE SODIUM SUCCINATE
  12. CARBOPLATIN. [Concomitant]
     Active Substance: CARBOPLATIN
  13. ETOPOSIDE. [Concomitant]
     Active Substance: ETOPOSIDE
  14. CYANOCOBALAMIN. [Concomitant]
     Active Substance: CYANOCOBALAMIN
  15. PYRIDOXINE [Concomitant]
     Active Substance: PYRIDOXINE
  16. RANITIDINE [Concomitant]
     Active Substance: RANITIDINE\RANITIDINE HYDROCHLORIDE
  17. CISPLATIN. [Concomitant]
     Active Substance: CISPLATIN

REACTIONS (17)
  - Night sweats [Unknown]
  - Chest discomfort [Recovered/Resolved]
  - Deformity thorax [Unknown]
  - Lymphadenopathy [Unknown]
  - Hodgkin^s disease recurrent [Unknown]
  - Nausea [Unknown]
  - Productive cough [Unknown]
  - Abdominal pain [Unknown]
  - Fatigue [Unknown]
  - Tachycardia [Unknown]
  - Headache [Unknown]
  - Vomiting [Unknown]
  - Soft tissue disorder [Unknown]
  - Off label use [Unknown]
  - Pyrexia [Unknown]
  - Chest pain [Unknown]
  - Death [Fatal]
